FAERS Safety Report 16646554 (Version 1)
Quarter: 2019Q3

REPORT INFORMATION
  Report Type: Spontaneous
  Country: BR (occurrence: BR)
  Receive Date: 20190730
  Receipt Date: 20190730
  Transmission Date: 20191004
  Serious: Yes (Other)
  Sender: FDA-Public Use
  Company Number: PHHY2019BR175238

PATIENT
  Sex: Female

DRUGS (1)
  1. ACLASTA [Suspect]
     Active Substance: ZOLEDRONIC ACID
     Indication: PRODUCT USE IN UNAPPROVED INDICATION
     Dosage: UNK MG, UNK
     Route: 065
     Dates: start: 2017, end: 2018

REACTIONS (3)
  - Fracture [Unknown]
  - Pain [Unknown]
  - Feeling abnormal [Unknown]
